FAERS Safety Report 7555367-2 (Version None)
Quarter: 2011Q2

REPORT INFORMATION
  Report Type: 
  Country: None (occurrence: None)
  Receive Date: 20110617
  Receipt Date: 20110608
  Transmission Date: 20111010
  Serious: Yes (Hospitalization, Other)
  Sender: FDA-Public Use
  Company Number: US-ASTRAZENECA-2011SE34959

PATIENT
  Age: 73 Year
  Sex: Male

DRUGS (6)
  1. METOPROLOL SUCCINATE [Concomitant]
  2. NIACIN [Concomitant]
  3. LISINOPRIL [Concomitant]
  4. NEXIUM [Suspect]
     Indication: ULCER
     Route: 048
  5. LIPITOR [Concomitant]
     Dates: start: 20030101
  6. AMIODARONE HCL [Concomitant]

REACTIONS (5)
  - CORONARY ARTERY BYPASS [None]
  - DRUG DOSE OMISSION [None]
  - ABDOMINAL DISCOMFORT [None]
  - CEREBROVASCULAR ACCIDENT [None]
  - MYOCARDIAL INFARCTION [None]
